FAERS Safety Report 19710413 (Version 4)
Quarter: 2021Q4

REPORT INFORMATION
  Report Type: Spontaneous
  Country: US (occurrence: US)
  Receive Date: 20210817
  Receipt Date: 20211112
  Transmission Date: 20220303
  Serious: No
  Sender: FDA-Public Use
  Company Number: US-LUPIN PHARMACEUTICALS INC.-2021-14428

PATIENT
  Sex: Male
  Weight: 106.58 kg

DRUGS (1)
  1. TESTOSTERONE GEL 1.62% [Suspect]
     Active Substance: TESTOSTERONE
     Indication: Androgen deficiency
     Dosage: UNK UNK, QD (3 PUMPS, ONCE DAILY ON THE SHOULDERS)
     Route: 061

REACTIONS (4)
  - Device delivery system issue [Unknown]
  - Product use issue [Unknown]
  - Product availability issue [Unknown]
  - No adverse event [Unknown]
